FAERS Safety Report 7764835-X (Version None)
Quarter: 2011Q3

REPORT INFORMATION
  Report Type: 
  Country: None (occurrence: None)
  Receive Date: 20110921
  Receipt Date: 20110915
  Transmission Date: 20111222
  Serious: Yes (Hospitalization, Other)
  Sender: FDA-Public Use
  Company Number: US-PFIZER INC-2011129702

PATIENT
  Sex: Female

DRUGS (1)
  1. CHANTIX [Suspect]
     Indication: SMOKING CESSATION THERAPY
     Dosage: STARTER PACK, 1MG
     Dates: start: 20090520, end: 20100801

REACTIONS (8)
  - SUICIDE ATTEMPT [None]
  - HALLUCINATION [None]
  - INSOMNIA [None]
  - NIGHTMARE [None]
  - BIPOLAR DISORDER [None]
  - PHYSICAL ASSAULT [None]
  - DEPRESSION [None]
  - ANXIETY [None]
